FAERS Safety Report 20155667 (Version 1)
Quarter: 2021Q4

REPORT INFORMATION
  Report Type: Spontaneous
  Country: US (occurrence: US)
  Receive Date: 20211207
  Receipt Date: 20211207
  Transmission Date: 20220303
  Serious: Yes (Other)
  Sender: FDA-Public Use
  Company Number: US-PFIZER INC-202101649194

PATIENT
  Age: 67 Year
  Sex: Male
  Weight: 72.57 kg

DRUGS (3)
  1. FUROSEMIDE [Suspect]
     Active Substance: FUROSEMIDE
     Indication: Fluid retention
     Dosage: 20 MG, 1X/DAY
  2. FUROSEMIDE [Suspect]
     Active Substance: FUROSEMIDE
     Indication: Liver disorder
     Dosage: 20 MG, ALTERNATE DAY (20MG EVERY OTHER DAY)
  3. TRAZODONE [Concomitant]
     Active Substance: TRAZODONE HYDROCHLORIDE
     Dosage: 50 MG, 1X/DAY (50MG CUT IN HALF FOR 25MG AT NIGHT )

REACTIONS (8)
  - Deafness [Unknown]
  - Headache [Unknown]
  - Balance disorder [Unknown]
  - Tinnitus [Unknown]
  - Migraine [Unknown]
  - Chills [Unknown]
  - Ear discomfort [Unknown]
  - Blood potassium decreased [Unknown]
